FAERS Safety Report 14345589 (Version 3)
Quarter: 2018Q3

REPORT INFORMATION
  Report Type: Report from Study
  Country: NL (occurrence: NL)
  Receive Date: 20180103
  Receipt Date: 20180914
  Transmission Date: 20181010
  Serious: Yes (Hospitalization, Other)
  Sender: FDA-Public Use
  Company Number: PHHY2017NL196154

PATIENT
  Age: 64 Year
  Sex: Male

DRUGS (2)
  1. SANDOSTATIN LAR DEPOT [Suspect]
     Active Substance: OCTREOTIDE ACETATE
     Indication: ACROMEGALY
     Dosage: 10 MG/2ML, QMO
     Route: 030
  2. SANDOSTATIN LAR DEPOT [Suspect]
     Active Substance: OCTREOTIDE ACETATE
     Dosage: 10 MG/2ML, QMO
     Route: 030
     Dates: start: 20140120

REACTIONS (4)
  - Rib fracture [Unknown]
  - Dyspnoea [Recovering/Resolving]
  - Fall [Unknown]
  - Pneumothorax [Unknown]

NARRATIVE: CASE EVENT DATE: 20171222
